FAERS Safety Report 14070461 (Version 1)
Quarter: 2017Q4

REPORT INFORMATION
  Report Type: Spontaneous
  Country: US (occurrence: US)
  Receive Date: 20171010
  Receipt Date: 20171010
  Transmission Date: 20180321
  Serious: No
  Sender: FDA-Public Use
  Company Number: US-PFIZER INC-2017436430

PATIENT
  Age: 76 Year
  Sex: Male

DRUGS (2)
  1. NEURONTIN [Suspect]
     Active Substance: GABAPENTIN
     Dosage: 4800 MG, DAILY(UP TO 6 PILLS PER DAY AT 800MG A PILL)
  2. NEURONTIN [Suspect]
     Active Substance: GABAPENTIN
     Dosage: 3000 MG, DAILY(THREE 1000 MG A DAY)

REACTIONS (3)
  - Drug ineffective [Unknown]
  - Muscle spasms [Unknown]
  - Overdose [Unknown]
